FAERS Safety Report 25584181 (Version 1)
Quarter: 2025Q3

REPORT INFORMATION
  Report Type: Spontaneous
  Country: US (occurrence: US)
  Receive Date: 20250721
  Receipt Date: 20250721
  Transmission Date: 20251021
  Serious: No
  Sender: ABBVIE
  Company Number: US-ABBVIE-6372230

PATIENT
  Sex: Female
  Weight: 57 kg

DRUGS (1)
  1. PRED FORTE [Suspect]
     Active Substance: PREDNISOLONE ACETATE
     Indication: Iritis
     Route: 047
     Dates: start: 2020

REACTIONS (1)
  - Intraocular pressure increased [Recovered/Resolved]
